FAERS Safety Report 8397798-7 (Version None)
Quarter: 2012Q2

REPORT INFORMATION
  Report Type: 
  Country: None (occurrence: None)
  Receive Date: 20120531
  Receipt Date: 20120521
  Transmission Date: 20120825
  Serious: Yes (Hospitalization)
  Sender: FDA-Public Use
  Company Number: US-JNJFOC-20120518193

PATIENT
  Sex: Female
  Weight: 59.1 kg

DRUGS (5)
  1. PREVACID [Concomitant]
  2. MESALAMINE [Concomitant]
     Route: 048
  3. AZATHIOPRINE [Concomitant]
  4. VITAMIN [Concomitant]
  5. REMICADE [Suspect]
     Indication: CROHN'S DISEASE
     Route: 042
     Dates: start: 20051117

REACTIONS (1)
  - CROHN'S DISEASE [None]
